FAERS Safety Report 6059552-0 (Version None)
Quarter: 2009Q1

REPORT INFORMATION
  Report Type: 
  Country: None (occurrence: None)
  Receive Date: 20090130
  Receipt Date: 20090121
  Transmission Date: 20090719
  Serious: Yes (Death)
  Sender: FDA-Public Use
  Company Number: NL-PFIZER INC-2009150651

PATIENT

DRUGS (8)
  1. THELIN [Suspect]
     Indication: PULMONARY ARTERIAL HYPERTENSION
     Dosage: 100 MG, 1X/DAY
     Route: 048
     Dates: start: 20071019, end: 20081003
  2. SILDENAFIL CITRATE [Suspect]
     Indication: PULMONARY ARTERIAL HYPERTENSION
     Dosage: UNK
     Dates: start: 20070601, end: 20081003
  3. ACENOCOUMAROL [Concomitant]
     Dosage: UNK
     Dates: end: 20081003
  4. FUROSEMIDE [Concomitant]
     Dosage: UNK
     Dates: end: 20081003
  5. SPIRONOLACTONE [Concomitant]
     Dosage: UNK
     Dates: end: 20081003
  6. METFORMIN HYDROCHLORIDE [Concomitant]
     Dosage: UNK
     Dates: end: 20081003
  7. GLIMEPIRIDE [Concomitant]
     Dosage: UNK
     Dates: end: 20081003
  8. SOTALOL [Concomitant]
     Dosage: UNK
     Dates: end: 20081003

REACTIONS (1)
  - PULMONARY ARTERIAL HYPERTENSION [None]
